FAERS Safety Report 9765258 (Version 4)
Quarter: 2014Q1

REPORT INFORMATION
  Report Type: Report from Study
  Country: DE (occurrence: DE)
  Receive Date: 20131217
  Receipt Date: 20140318
  Transmission Date: 20141002
  Serious: Yes (Hospitalization)
  Sender: FDA-Public Use
  Company Number: DE-BEH-2013039413

PATIENT
  Age: 71 Year
  Sex: Female
  Weight: 70 kg

DRUGS (13)
  1. PRIVIGEN [Suspect]
     Indication: SECONDARY IMMUNODEFICIENCY
     Dosage: INFUSION RATE: 0.8 ML/MIN
     Route: 042
     Dates: start: 20130905, end: 20130905
  2. PRIVIGEN [Suspect]
     Dosage: INFUSION RATE: 0.8 ML/MIN / 1 ML/MIN
     Route: 042
     Dates: start: 20131010, end: 20131010
  3. ASS [Concomitant]
     Indication: THROMBOSIS PROPHYLAXIS
     Dosage: START AND STOP DATE: UNKNOWN
     Route: 048
  4. RAMIPRIL 5/25 [Concomitant]
     Indication: CARDIAC FAILURE
     Dosage: START AND STOP DATE: UNKNOWN, DAILY DOSE: 5/25 [UNIT WAS NOT PROVIDED]
     Route: 048
  5. NEBILET [Concomitant]
     Indication: CARDIAC FAILURE
     Dosage: START AND STOP DATE: UNKNOWN
     Route: 048
  6. TORASEMID [Concomitant]
  7. NEBIVOLOL [Concomitant]
  8. ALLOPURINOL [Concomitant]
  9. BROTIZOLAM [Concomitant]
  10. FENISTIL [Concomitant]
     Indication: PREMEDICATION
     Dosage: DOSE: 1 AMPOULE
     Route: 042
     Dates: start: 20130905, end: 20130905
  11. FENISTIL [Concomitant]
     Dosage: DOSE: 1 AMPOULE
     Route: 042
     Dates: start: 20131010, end: 20131010
  12. RANITIDIN [Concomitant]
     Indication: PREMEDICATION
     Route: 042
     Dates: start: 20130905, end: 20130905
  13. RANITIDIN [Concomitant]
     Route: 042
     Dates: start: 20131010, end: 20131010

REACTIONS (1)
  - Atrial fibrillation [Recovered/Resolved]
